FAERS Safety Report 25451860 (Version 1)
Quarter: 2025Q2

REPORT INFORMATION
  Report Type: Spontaneous
  Country: US (occurrence: None)
  Receive Date: 20250617
  Receipt Date: 20250617
  Transmission Date: 20250717
  Serious: Yes (Hospitalization)
  Sender: FDA-CTU
  Company Number: None

PATIENT
  Age: 65 Year
  Sex: Female

DRUGS (19)
  1. TACROLIMUS [Suspect]
     Active Substance: TACROLIMUS
     Indication: Lung transplant
     Dosage: FREQUENCY : TWICE A DAY;?
     Route: 048
  2. TACROLIMUS [Suspect]
     Active Substance: TACROLIMUS
     Indication: Lung transplant
     Dosage: FREQUENCY : TWICE A DAY;?
     Route: 048
  3. ethambutol 400 mg tablet [Concomitant]
     Dates: start: 20250208
  4. rifabutin 150 mg capsule [Concomitant]
     Dates: start: 20250208
  5. isoniazid 100 mg tablet [Concomitant]
     Dates: start: 20250208
  6. vitamin b-6 50 mg tablet [Concomitant]
     Dates: start: 20250111
  7. pravastatin 20 mg tablet [Concomitant]
     Dates: start: 20240920
  8. FOLIC ACID [Concomitant]
     Active Substance: FOLIC ACID
     Dates: start: 20250111
  9. metoprolol ER succinate 25 mg tablet [Concomitant]
     Dates: start: 20250111
  10. OLANZAPINE [Concomitant]
     Active Substance: OLANZAPINE
     Dates: start: 20250111
  11. sulfamethoxazole/trimethoprim 400/80 mg tablet [Concomitant]
     Dates: start: 20240920
  12. OMEPRAZOLE [Concomitant]
     Active Substance: OMEPRAZOLE
     Dates: start: 20240920
  13. MOXIFLOXACIN [Concomitant]
     Active Substance: MOXIFLOXACIN
     Dates: start: 20250208
  14. bumetanide 1 mg tablet [Concomitant]
  15. PREDNISONE [Concomitant]
     Active Substance: PREDNISONE
     Dates: start: 20240920
  16. TACROLIMUS [Concomitant]
     Active Substance: TACROLIMUS
     Dates: start: 20240920, end: 20250327
  17. mag-oxide 400 mg tablet [Concomitant]
     Dates: start: 20241017
  18. pyrazinamide 500 mg tablet [Concomitant]
     Dates: start: 20250208, end: 20250220
  19. valganciclovir 450 mg tablet [Concomitant]
     Dates: start: 20240920

REACTIONS (2)
  - Tuberculosis [None]
  - Hyperkalaemia [None]

NARRATIVE: CASE EVENT DATE: 20250522
